FAERS Safety Report 4425978-1 (Version None)
Quarter: 2004Q3

REPORT INFORMATION
  Report Type: 
  Country: None (occurrence: None)
  Receive Date: 20040719
  Receipt Date: 20030908
  Transmission Date: 20050211
  Serious: Yes (Hospitalization)
  Sender: FDA-Public Use
  Company Number: 179516

PATIENT
  Age: 39 Year
  Sex: Male
  Weight: 95.2554 kg

DRUGS (5)
  1. AVONEX [Suspect]
     Indication: MULTIPLE SCLEROSIS
     Dosage: 30 MCG QW IM
     Route: 030
     Dates: start: 19960101, end: 20030101
  2. AVONEX [Suspect]
     Indication: MULTIPLE SCLEROSIS
     Dosage: 30 MCG QW IM
     Route: 030
     Dates: start: 20030101
  3. PRAVACHOL [Concomitant]
  4. ANTI-HYPERTENSIVE MEDICATION (NOS) [Concomitant]
  5. MEDICATION (NOS) [Concomitant]

REACTIONS (1)
  - MULTIPLE SCLEROSIS [None]
